FAERS Safety Report 10313365 (Version 2)
Quarter: 2014Q3

REPORT INFORMATION
  Report Type: Spontaneous
  Country: US (occurrence: US)
  Receive Date: 20140718
  Receipt Date: 20140725
  Transmission Date: 20150326
  Serious: Yes (Hospitalization, Other)
  Sender: FDA-Public Use
  Company Number: US-BAXTER-2014BAX039346

PATIENT
  Age: 21 Year
  Sex: Male

DRUGS (1)
  1. DIANEAL LOW CALCIUM PERITONEAL DIALYSIS SOLUTION WITH DEXTROSE [Suspect]
     Active Substance: CALCIUM CHLORIDE\DEXTROSE\MAGNESIUM CHLORIDE\SODIUM CHLORIDE\SODIUM LACTATE
     Indication: RENAL FAILURE CHRONIC
     Route: 033
     Dates: start: 20130318

REACTIONS (2)
  - Cyst [Recovered/Resolved]
  - Blood count abnormal [Recovering/Resolving]

NARRATIVE: CASE EVENT DATE: 20140612
